FAERS Safety Report 25411640 (Version 1)
Quarter: 2025Q2

REPORT INFORMATION
  Report Type: Spontaneous
  Country: US (occurrence: US)
  Receive Date: 20250609
  Receipt Date: 20250609
  Transmission Date: 20250717
  Serious: Yes (Life-Threatening, Hospitalization, Other)
  Sender: Unknown Manufacturer
  Company Number: US-862174955-ML2025-02630

PATIENT
  Age: 35 Year
  Sex: Female

DRUGS (1)
  1. DIPHENHYDRAMINE [Suspect]
     Active Substance: DIPHENHYDRAMINE
     Indication: Product used for unknown indication
     Route: 048

REACTIONS (5)
  - Bundle branch block left [Recovered/Resolved]
  - Toxicity to various agents [Unknown]
  - Intentional self-injury [Unknown]
  - Intentional overdose [Unknown]
  - Generalised tonic-clonic seizure [Unknown]
